FAERS Safety Report 16837997 (Version 1)
Quarter: 2019Q3

REPORT INFORMATION
  Report Type: Spontaneous
  Country: FR (occurrence: FR)
  Receive Date: 20190923
  Receipt Date: 20190923
  Transmission Date: 20191005
  Serious: Yes (Death)
  Sender: FDA-Public Use
  Company Number: FR-TEVA-2019-FR-1110865

PATIENT
  Age: 82 Year
  Sex: Male
  Weight: 110 kg

DRUGS (11)
  1. LASILIX 20 MG/2 ML, SOLUTION INJECTABLE EN AMPOULE [Suspect]
     Active Substance: FUROSEMIDE
     Indication: HYPERTENSION
     Dosage: 20 MG / 2 ML; 40 MG PER 1 DAY
     Route: 058
     Dates: end: 20180312
  2. DUOPLAVIN [Suspect]
     Active Substance: ASPIRIN\CLOPIDOGREL
     Indication: PROPHYLAXIS
     Dosage: 1 DF, 1 DAY
     Route: 048
     Dates: end: 20180312
  3. AMLOR 10 MG, G?LULE [Suspect]
     Active Substance: AMLODIPINE BESYLATE
     Indication: HYPERTENSION
     Dosage: 1 DF, 1 DAY
     Route: 048
     Dates: end: 20180312
  4. TEMERIT 5 MG, COMPRIM? QUADRIS?CABLE [Suspect]
     Active Substance: NEBIVOLOL HYDROCHLORIDE
     Indication: HYPERTENSION
     Dosage: 1 DF, 1 DAY
     Route: 048
     Dates: end: 20180312
  5. LEVEMIR [Suspect]
     Active Substance: INSULIN DETEMIR
     Indication: HYPERTENSION
     Dosage: 40 IU, 1 DAY
     Route: 058
     Dates: end: 20180312
  6. ALDACTONE [Suspect]
     Active Substance: SPIRONOLACTONE
     Indication: HYPERTENSION
     Dosage: 1 DF, 1 DAY
     Route: 048
     Dates: end: 20180312
  7. NOVONORM 1 MG, COMPRIM? [Suspect]
     Active Substance: REPAGLINIDE
     Indication: DIABETES MELLITUS
     Dosage: 3 DF, 1 DAY
     Route: 048
     Dates: end: 20180312
  8. METFORMINE [Suspect]
     Active Substance: METFORMIN HYDROCHLORIDE
     Indication: DIABETES MELLITUS
     Dosage: 1700 MG, 1 DAY
     Route: 048
     Dates: end: 20180312
  9. MOPRAL 20 MG, COMPRIM? GASTRO-R?SISTANT [Suspect]
     Active Substance: OMEPRAZOLE
     Indication: PRODUCT USED FOR UNKNOWN INDICATION
     Dosage: 1 DF, 1 DAY
     Route: 048
     Dates: end: 20180312
  10. TRULICITY [Suspect]
     Active Substance: DULAGLUTIDE
     Indication: DIABETES MELLITUS
     Dosage: 1 DF PER 1 WEEK
     Route: 058
     Dates: end: 20180312
  11. TAHOR [Suspect]
     Active Substance: ATORVASTATIN CALCIUM
     Indication: DYSLIPIDAEMIA
     Dosage: 1 DF, 1 DAY
     Route: 048
     Dates: end: 20180312

REACTIONS (2)
  - Lactic acidosis [Fatal]
  - Acute kidney injury [Fatal]

NARRATIVE: CASE EVENT DATE: 20180312
